FAERS Safety Report 17351442 (Version 1)
Quarter: 2020Q1

REPORT INFORMATION
  Report Type: Report from Study
  Country: CA (occurrence: CA)
  Receive Date: 20200130
  Receipt Date: 20200130
  Transmission Date: 20200409
  Serious: Yes (Other)
  Sender: FDA-Public Use
  Company Number: CA-JNJFOC-20191036660

PATIENT
  Age: 49 Year
  Sex: Female
  Weight: 99.79 kg

DRUGS (2)
  1. STELARA [Suspect]
     Active Substance: USTEKINUMAB
     Route: 058
  2. STELARA [Suspect]
     Active Substance: USTEKINUMAB
     Indication: CROHN^S DISEASE
     Dosage: STRENGTH = 130 MG
     Route: 042
     Dates: start: 20191002

REACTIONS (9)
  - Contrast media reaction [Recovered/Resolved]
  - Cystitis [Recovered/Resolved]
  - Hot flush [Unknown]
  - Rash pruritic [Recovered/Resolved]
  - Migraine [Unknown]
  - Paraesthesia [Unknown]
  - Rectal haemorrhage [Unknown]
  - Nausea [Unknown]
  - Pain in extremity [Unknown]

NARRATIVE: CASE EVENT DATE: 201910
